FAERS Safety Report 7465249-2 (Version None)
Quarter: 2011Q2

REPORT INFORMATION
  Report Type: 
  Country: None (occurrence: None)
  Receive Date: 20110509
  Receipt Date: 20110427
  Transmission Date: 20111010
  Serious: Yes (Other)
  Sender: FDA-Public Use
  Company Number: PHHY2011NL36072

PATIENT
  Sex: Female

DRUGS (4)
  1. ZOMETA [Suspect]
     Dosage: UNK
     Dates: start: 20100426
  2. ZOMETA [Suspect]
     Indication: BREAST CANCER METASTATIC
     Dosage: 4 MG, UNK
     Dates: start: 20090421
  3. ZOMETA [Suspect]
     Dosage: UNK
     Dates: start: 20101025
  4. FEMARA [Concomitant]

REACTIONS (3)
  - PAIN IN JAW [None]
  - PERIODONTITIS [None]
  - ORAL PAIN [None]
